FAERS Safety Report 23963383 (Version 1)
Quarter: 2024Q2

REPORT INFORMATION
  Report Type: Spontaneous
  Country: DE (occurrence: DE)
  Receive Date: 20240611
  Receipt Date: 20240611
  Transmission Date: 20240715
  Serious: Yes (Other)
  Sender: FDA-Public Use
  Company Number: DE-AstraZeneca-CH-00605754A

PATIENT
  Age: 47 Year
  Sex: Female
  Weight: 90 kg

DRUGS (1)
  1. ULTOMIRIS [Suspect]
     Active Substance: RAVULIZUMAB-CWVZ
     Indication: Product used for unknown indication
     Dosage: 3300 UNK
     Route: 065

REACTIONS (2)
  - Meningococcal infection [Recovered/Resolved]
  - Paraparesis [Recovered/Resolved]

NARRATIVE: CASE EVENT DATE: 20240322
